FAERS Safety Report 9209025 (Version 2)
Quarter: 2013Q4

REPORT INFORMATION
  Report Type: Spontaneous
  Country: TR (occurrence: TR)
  Receive Date: 20130404
  Receipt Date: 20131007
  Transmission Date: 20140711
  Serious: Yes (Hospitalization)
  Sender: FDA-Public Use
  Company Number: TR-AMGEN-TURSP2012061638

PATIENT
  Age: 43 Year
  Sex: Female

DRUGS (2)
  1. ENBREL [Suspect]
     Indication: RHEUMATOID ARTHRITIS
     Dosage: 50 MG, QWK
     Route: 058
     Dates: start: 201204, end: 20130115
  2. ENBREL [Suspect]
     Dosage: 50 MG, (EVERY 2 WEEKS )
     Route: 058
     Dates: start: 201303

REACTIONS (7)
  - Blood test abnormal [Recovered/Resolved]
  - Decreased immune responsiveness [Recovered/Resolved]
  - Menstruation irregular [Not Recovered/Not Resolved]
  - Pyrexia [Not Recovered/Not Resolved]
  - Influenza [Recovered/Resolved]
  - Pharyngitis [Recovered/Resolved]
  - Injection site pain [Not Recovered/Not Resolved]
